FAERS Safety Report 9805428 (Version 1)
Quarter: 2014Q1

REPORT INFORMATION
  Report Type: Spontaneous
  Country: BR (occurrence: BR)
  Receive Date: 20140109
  Receipt Date: 20140109
  Transmission Date: 20141002
  Serious: Yes (Death, Hospitalization)
  Sender: FDA-Public Use
  Company Number: BR-ASTRAZENECA-2014SE00910

PATIENT
  Age: 100 Year
  Sex: Female

DRUGS (5)
  1. SEROQUEL XRO [Suspect]
     Indication: DEMENTIA ALZHEIMER^S TYPE
     Dosage: THREE TIMES A DAY
     Route: 048
  2. ALOIS [Concomitant]
     Indication: DEMENTIA ALZHEIMER^S TYPE
     Dosage: DAILY
     Route: 048
  3. ASSERT [Concomitant]
     Indication: DEMENTIA ALZHEIMER^S TYPE
     Dosage: DAILY
     Route: 048
  4. LOSARTAN [Concomitant]
     Indication: CARDIAC DISORDER
     Route: 048
  5. GLIBENCLAMIDE [Concomitant]
     Indication: DIABETES MELLITUS
     Route: 048

REACTIONS (5)
  - Ischaemic stroke [Fatal]
  - Pneumonia bacterial [Fatal]
  - Septic shock [Fatal]
  - Off label use [Not Recovered/Not Resolved]
  - Off label use [Not Recovered/Not Resolved]
